FAERS Safety Report 9402535 (Version 2)
Quarter: 2013Q3

REPORT INFORMATION
  Report Type: Spontaneous
  Country: FR (occurrence: FR)
  Receive Date: 20130716
  Receipt Date: 20130809
  Transmission Date: 20140515
  Serious: Yes (Other)
  Sender: FDA-Public Use
  Company Number: FR-PFIZER INC-2013206680

PATIENT
  Age: 72 Year
  Sex: Male

DRUGS (2)
  1. RAMIPRIL-ZENTIVA [Suspect]
     Dosage: 1 UNIT DAILY
     Route: 048
     Dates: start: 2013, end: 201307
  2. LEVOTHYROX [Concomitant]
     Dosage: UNK

REACTIONS (4)
  - Inguinal hernia [Recovered/Resolved]
  - Cough [Recovered/Resolved]
  - Paraesthesia [Recovered/Resolved]
  - Constipation [Recovered/Resolved]
